FAERS Safety Report 21165315 (Version 1)
Quarter: 2022Q3

REPORT INFORMATION
  Report Type: Spontaneous
  Country: US (occurrence: US)
  Receive Date: 20220803
  Receipt Date: 20220803
  Transmission Date: 20221026
  Serious: No
  Sender: FDA-Public Use
  Company Number: US-ALKEM LABORATORIES LIMITED-US-ALKEM-2022-00559

PATIENT
  Age: 15 Year
  Sex: Male

DRUGS (2)
  1. LAMOTRIGINE [Suspect]
     Active Substance: LAMOTRIGINE
     Indication: Generalised tonic-clonic seizure
     Dosage: 200 MG/D
     Route: 065
  2. LAMOTRIGINE [Suspect]
     Active Substance: LAMOTRIGINE
     Dosage: 800 MG/D
     Route: 065

REACTIONS (4)
  - Pyrexia [Recovered/Resolved]
  - Chest pain [Recovered/Resolved]
  - Cough [Recovered/Resolved]
  - Pleural effusion [Recovered/Resolved]
